FAERS Safety Report 6497995-1 (Version None)
Quarter: 2009Q4

REPORT INFORMATION
  Report Type: 
  Country: None (occurrence: None)
  Receive Date: 20091215
  Receipt Date: 20091202
  Transmission Date: 20100525
  Serious: Yes (Other)
  Sender: FDA-Public Use
  Company Number: PHHY2009JP33427

PATIENT
  Sex: Female
  Weight: 61 kg

DRUGS (53)
  1. STI571/CGP57148B T35717+TAB [Suspect]
     Indication: ACUTE LYMPHOCYTIC LEUKAEMIA
     Dosage: 600 MG/DAY
     Route: 048
     Dates: start: 20080905, end: 20080921
  2. STI571/CGP57148B T35717+TAB [Suspect]
     Dosage: 200 MG/DAY
     Route: 048
     Dates: start: 20081022, end: 20081030
  3. STI571/CGP57148B T35717+TAB [Suspect]
     Dosage: 300 MG/DAY
     Route: 048
     Dates: start: 20081031, end: 20081106
  4. STI571/CGP57148B T35717+TAB [Suspect]
     Dosage: 200 MG/DAY
     Route: 048
     Dates: start: 20081107, end: 20081118
  5. STI571/CGP57148B T35717+TAB [Suspect]
     Dosage: 200 MG/DAY
     Dates: start: 20081205, end: 20090104
  6. STI571/CGP57148B T35717+TAB [Suspect]
     Dosage: 200 MG/DAY
     Dates: start: 20090130, end: 20090301
  7. STI571/CGP57148B T35717+TAB [Suspect]
     Dosage: 600 MG/DAY
     Route: 048
     Dates: start: 20090323
  8. PREDONINE [Concomitant]
     Dosage: 95 MG
     Route: 048
     Dates: start: 20080911
  9. PREDONINE [Concomitant]
     Dosage: 50 MG, UNK
     Dates: start: 20080911
  10. PREDONINE [Concomitant]
     Dosage: 25 MG, UNK
  11. PREDONINE [Concomitant]
     Dosage: 10 MG, UNK
  12. PREDONINE [Concomitant]
     Dosage: 5 MG, UNK
     Route: 048
     Dates: end: 20081009
  13. ONCOVIN [Concomitant]
     Dosage: 2 MG, UNK
     Route: 041
     Dates: start: 20080911
  14. ONCOVIN [Concomitant]
     Dosage: 2 MG, UNK
     Route: 041
  15. ONCOVIN [Concomitant]
     Dosage: 2 MG, UNK
     Route: 041
  16. ONCOVIN [Concomitant]
     Dosage: 2 MG, UNK
     Route: 041
     Dates: end: 20081002
  17. DAIPHEN [Concomitant]
     Dosage: 1 DF, UNK
     Route: 048
     Dates: start: 20080905, end: 20081016
  18. SENNOSIDE [Concomitant]
     Dosage: 12 MG, UNK
     Route: 048
     Dates: start: 20080916, end: 20081010
  19. TAKEPRON [Concomitant]
     Dosage: 0.25 MG, UNK
     Route: 048
     Dates: start: 20081017
  20. SLOW-K [Concomitant]
     Dosage: UNK
     Route: 048
     Dates: start: 20081116
  21. SLOW-K [Concomitant]
     Route: 048
  22. ZOPLICONE [Concomitant]
     Route: 048
  23. TRIAZOLAM [Concomitant]
     Dosage: 0.25 MG, UNK
     Route: 048
     Dates: start: 20081006, end: 20081023
  24. MECOBALAMIN [Concomitant]
     Dosage: 1500 MG, UNK
     Route: 048
  25. LOXOPROFEN [Concomitant]
     Dosage: 60 MG, UNK
     Route: 048
  26. HUMULIN R [Concomitant]
     Dosage: 1 ML, UNK
     Route: 042
  27. BROACT [Concomitant]
     Dosage: 2 G, UNK
     Route: 042
  28. BROACT [Concomitant]
     Dosage: UNK
     Route: 042
     Dates: start: 20090311, end: 20090316
  29. GLUCOSE [Concomitant]
     Dosage: 1 DF, UNK
     Route: 042
  30. PANABATE [Concomitant]
     Dosage: 1500 MG, UNK
     Route: 042
  31. SOLDEM 3A [Concomitant]
     Dosage: UNK
     Route: 042
     Dates: start: 20080916
  32. SOLDEM 3A [Concomitant]
     Dosage: UNK
     Route: 042
     Dates: end: 20090322
  33. SOLDEM 1 [Concomitant]
     Dosage: UNK
     Route: 042
     Dates: start: 20080905
  34. SOLDEM 1 [Concomitant]
     Dosage: UNK
     Route: 042
     Dates: end: 20081027
  35. TAIPERACILIN [Concomitant]
     Dosage: 4 G, UNK
     Route: 042
     Dates: start: 20080905, end: 20080917
  36. NOVORAPID [Concomitant]
     Dosage: 300 DF, UNK
     Route: 058
     Dates: start: 20080911, end: 20080911
  37. POTASSIUM CHLORIDE [Concomitant]
     Dosage: 20 MEQ, UNK
     Route: 042
     Dates: start: 20080919, end: 20091012
  38. PRIMPERAN TAB [Concomitant]
     Dosage: UNK
     Route: 042
     Dates: start: 20080913, end: 20081011
  39. MEYLON [Concomitant]
     Dosage: UNK
     Route: 042
     Dates: start: 20080905, end: 20080916
  40. DEXAMETHASONE SODIUM PHOSPHATE [Concomitant]
     Dosage: 4 MG, UNK
     Route: 042
     Dates: start: 20081019
  41. DEXAMETHASONE SODIUM PHOSPHATE [Concomitant]
     Dosage: 4 MG, UNK
     Route: 042
     Dates: end: 20081105
  42. KYTRIL [Concomitant]
     Dosage: 3 MG, UNK
     Route: 042
     Dates: start: 20081019
  43. KYTRIL [Concomitant]
     Dosage: 6 MG, UNK
     Route: 042
     Dates: start: 20090108
  44. KYTRIL [Concomitant]
     Dosage: 6 MG, UNK
     Route: 042
     Dates: start: 20090302, end: 20090304
  45. PRIDOL [Concomitant]
     Dosage: 2.5 DF, UNK
     Route: 042
     Dates: start: 20081019
  46. PRIDOL [Concomitant]
     Dosage: 2.5 DF, UNK
     Route: 042
     Dates: end: 20090108
  47. CYLOCIDE [Concomitant]
     Dosage: UNK
     Route: 042
     Dates: start: 20081019
  48. CYLOCIDE [Concomitant]
     Dosage: UNK
     Route: 042
     Dates: end: 20081105
  49. CYLOCIDE [Concomitant]
     Dosage: UNK
     Route: 042
     Dates: start: 20090106, end: 20090108
  50. SOLU-CORTEF [Concomitant]
     Dosage: 200 MG, UNK
     Route: 042
     Dates: start: 20081026
  51. SOLU-CORTEF [Concomitant]
     Dosage: 200 MG, UNK
     Route: 042
     Dates: end: 20090112
  52. DIAMOX SRC [Concomitant]
     Dosage: 250 MG, UNK
     Route: 042
     Dates: start: 20090108, end: 20090109
  53. UNASYN [Concomitant]
     Dosage: 1.5 DF, UNK
     Route: 042
     Dates: start: 20090319, end: 20090320

REACTIONS (8)
  - DEMENTIA [None]
  - HERPES ZOSTER [None]
  - HYPOCOAGULABLE STATE [None]
  - HYPOKALAEMIA [None]
  - MALAISE [None]
  - OEDEMA [None]
  - PANCYTOPENIA [None]
  - PLEURAL EFFUSION [None]
